FAERS Safety Report 8203812-1 (Version None)
Quarter: 2012Q1

REPORT INFORMATION
  Report Type: 
  Country: None (occurrence: None)
  Receive Date: 20120308
  Receipt Date: 20120222
  Transmission Date: 20120608
  Serious: Yes (Hospitalization)
  Sender: FDA-Public Use
  Company Number: DSA_55228_2012

PATIENT
  Age: 73 Year
  Sex: Female

DRUGS (4)
  1. ENALAPRIL MALEATE [Suspect]
     Indication: HYPERTENSION
     Dosage: 20 MG QD ORAL REDUCED DOSED DOSE NOT SPECFIED ORAL
     Route: 048
     Dates: start: 20110601, end: 20120217
  2. AMILORIDE HCL [Suspect]
     Indication: HYPERTENSION
     Dosage: 5 MG + 50
     Dates: start: 20110901, end: 20120217
  3. LENDRORMIN [Concomitant]
  4. DIAZEPAM [Concomitant]

REACTIONS (3)
  - HYPOTENSION [None]
  - VERTIGO [None]
  - HEAD INJURY [None]
